FAERS Safety Report 9521878 (Version 1)
Quarter: 2013Q3

REPORT INFORMATION
  Report Type: Spontaneous
  Country: JP (occurrence: None)
  Receive Date: 20130911
  Receipt Date: 20130911
  Transmission Date: 20140515
  Serious: Yes (Hospitalization)
  Sender: FDA-Public Use
  Company Number: SYM-2013-10483

PATIENT
  Sex: 0

DRUGS (4)
  1. FLUOROURACIL (FLUOROURACIL) (FLUOROURACIL) [Suspect]
     Indication: HEAD AND NECK CANCER
  2. TAXOTERE (DOCETAXEL) (DOCETAXEL) [Suspect]
     Route: 042
  3. CISPLATIN (CISPLATIN) (CISPLATIN) [Suspect]
  4. QUNOLENE ANTIBACTERIALS (QUINOLENE ANTIBACTERIALS) [Concomitant]

REACTIONS (1)
  - Neutropenia [None]
